FAERS Safety Report 12220911 (Version 3)
Quarter: 2016Q2

REPORT INFORMATION
  Report Type: Spontaneous
  Country: US (occurrence: US)
  Receive Date: 20160330
  Receipt Date: 20160519
  Transmission Date: 20160815
  Serious: No
  Sender: FDA-Public Use
  Company Number: US-PFIZER INC-2016181934

PATIENT
  Age: 78 Year
  Sex: Female

DRUGS (4)
  1. LYRICA [Suspect]
     Active Substance: PREGABALIN
     Dosage: UNK (100MG IN AM, 200MG AT  PM)
     Dates: start: 201508
  2. LYRICA [Suspect]
     Active Substance: PREGABALIN
     Dosage: ONE CAPSULE IN THE EVENING ON 25MAR2016
     Dates: start: 20160325, end: 20160325
  3. LYRICA [Suspect]
     Active Substance: PREGABALIN
     Indication: NEUROPATHY PERIPHERAL
     Dosage: ONE CAPSULE IN THE MORNING AND 2 CAPSULES IN THE EVENING
  4. LYRICA [Suspect]
     Active Substance: PREGABALIN
     Dosage: ONE CAPSULE IN THE MORNING OF 26MAR2016
     Dates: start: 20160326, end: 20160326

REACTIONS (5)
  - Neuralgia [Not Recovered/Not Resolved]
  - Insomnia [Recovered/Resolved]
  - Pain in extremity [Unknown]
  - Intentional product misuse [Unknown]
  - Muscle spasms [Recovered/Resolved]
